FAERS Safety Report 25302813 (Version 1)
Quarter: 2025Q2

REPORT INFORMATION
  Report Type: Report from Study
  Country: US (occurrence: US)
  Receive Date: 20250512
  Receipt Date: 20250512
  Transmission Date: 20250716
  Serious: No
  Sender: SUNOVION
  Company Number: US-SMPA-2025SPA004722AA

PATIENT

DRUGS (1)
  1. ORGOVYX [Suspect]
     Active Substance: RELUGOLIX
     Indication: Prostate cancer
     Dosage: 120 MG, QD
     Route: 048
     Dates: start: 20250314

REACTIONS (5)
  - Blood pressure increased [Unknown]
  - Glomerular filtration rate decreased [Unknown]
  - Hot flush [Unknown]
  - Headache [Unknown]
  - Incorrect dose administered [Unknown]
